FAERS Safety Report 22619535 (Version 1)
Quarter: 2023Q2

REPORT INFORMATION
  Report Type: Spontaneous
  Country: RU (occurrence: RU)
  Receive Date: 20230620
  Receipt Date: 20230620
  Transmission Date: 20230721
  Serious: Yes (Hospitalization)
  Sender: FDA-Public Use
  Company Number: RU-drreddys-LIT/RUS/23/0167662

PATIENT
  Age: 47 Year
  Sex: Male
  Weight: 70 kg

DRUGS (9)
  1. ENALAPRIL MALEATE [Suspect]
     Active Substance: ENALAPRIL MALEATE
     Indication: Hypertension
  2. ENALAPRIL MALEATE [Suspect]
     Active Substance: ENALAPRIL MALEATE
     Dosage: MORNING/EVENING
  3. CETIRIZINE [Suspect]
     Active Substance: CETIRIZINE HYDROCHLORIDE
     Indication: Product used for unknown indication
  4. APIXABAN [Suspect]
     Active Substance: APIXABAN
     Indication: Anticoagulant therapy
  5. CLOBETASOL [Suspect]
     Active Substance: CLOBETASOL
     Indication: Product used for unknown indication
     Route: 061
  6. VITAMIN E [Concomitant]
     Active Substance: .ALPHA.-TOCOPHEROL
     Indication: Product used for unknown indication
  7. UREA [Concomitant]
     Active Substance: UREA
     Indication: Product used for unknown indication
  8. VITAMIN A [Concomitant]
     Active Substance: VITAMIN A
     Indication: Product used for unknown indication
  9. CERAMIDE [Concomitant]
     Indication: Product used for unknown indication

REACTIONS (14)
  - Acarodermatitis [Unknown]
  - Cerebral infarction [Unknown]
  - Hemiparesis [Unknown]
  - Aphasia [Unknown]
  - Pelvic floor dysfunction [Unknown]
  - Hypertension [Unknown]
  - Cerebral artery occlusion [Unknown]
  - Myocardial ischaemia [Unknown]
  - Myocardial fibrosis [Unknown]
  - Cardiac failure chronic [Unknown]
  - Aneurysm thrombosis [Unknown]
  - Postpartum venous thrombosis [Unknown]
  - Toxic skin eruption [Unknown]
  - Ischaemic stroke [Unknown]

NARRATIVE: CASE EVENT DATE: 20220901
